FAERS Safety Report 8301233-4 (Version None)
Quarter: 2012Q2

REPORT INFORMATION
  Report Type: 
  Country: None (occurrence: None)
  Receive Date: 20120420
  Receipt Date: 20120412
  Transmission Date: 20120825
  Serious: Yes (Other)
  Sender: FDA-Public Use
  Company Number: US-US-EMD SERONO, INC.-7126422

PATIENT
  Sex: Female

DRUGS (5)
  1. MULTI-VITAMIN [Concomitant]
     Indication: PRODUCT USED FOR UNKNOWN INDICATION
  2. ANTIDEPRESSANTS [Concomitant]
     Indication: DEPRESSION
  3. TIZANTADINE [Concomitant]
     Indication: GAIT DISTURBANCE
  4. PREMPRO [Concomitant]
     Indication: PRODUCT USED FOR UNKNOWN INDICATION
  5. REBIF [Suspect]
     Indication: MULTIPLE SCLEROSIS
     Route: 058
     Dates: start: 20100210

REACTIONS (3)
  - BENIGN NEOPLASM OF THYROID GLAND [None]
  - FALL [None]
  - INJECTION SITE ERYTHEMA [None]
